FAERS Safety Report 4714971-7 (Version None)
Quarter: 2005Q3

REPORT INFORMATION
  Report Type: 
  Country: None (occurrence: None)
  Receive Date: 20050713
  Receipt Date: 20050630
  Transmission Date: 20060218
  Serious: Yes (Other)
  Sender: FDA-Public Use
  Company Number: 2005073601

PATIENT
  Age: 30 Year
  Sex: Female
  Weight: 55 kg

DRUGS (2)
  1. DEPO-CLINOVIR (MEDROXYPROGESTERONE ACETATE) [Suspect]
     Indication: CONTRACEPTION
     Dosage: SEE IMAGE
     Dates: start: 20050101, end: 20050101
  2. DEPO-CLINOVIR (MEDROXYPROGESTERONE ACETATE) [Suspect]
     Indication: CONTRACEPTION
     Dosage: SEE IMAGE
     Dates: start: 20050214, end: 20050214

REACTIONS (12)
  - ALOPECIA [None]
  - AMENORRHOEA [None]
  - BLOOD PRESSURE INCREASED [None]
  - DIZZINESS [None]
  - FATIGUE [None]
  - HYPERHIDROSIS [None]
  - METRORRHAGIA [None]
  - MUSCLE SPASMS [None]
  - PELVIC PAIN [None]
  - SKIN DISORDER [None]
  - TACHYCARDIA [None]
  - VAGINAL PAIN [None]
